FAERS Safety Report 9184679 (Version 3)
Quarter: 2013Q2

REPORT INFORMATION
  Report Type: Spontaneous
  Country: US (occurrence: US)
  Receive Date: 20130324
  Receipt Date: 20130430
  Transmission Date: 20140414
  Serious: No
  Sender: FDA-Public Use
  Company Number: US-009507513-1303USA006337

PATIENT
  Age: 59 Year
  Sex: Male
  Weight: 108.84 kg

DRUGS (7)
  1. VICTRELIS [Suspect]
     Dosage: 800 MG, THREE TIMES A DAY (EVERY 7-9 HOURS)
     Route: 048
  2. PEGASYS [Suspect]
     Dosage: 180 MICROGRAM, UNK
  3. RIBAPAK [Suspect]
     Dosage: 1200/DAY
  4. TOPROL XL TABLETS [Concomitant]
  5. LISINOPRIL [Concomitant]
     Route: 048
  6. PLENDIL [Concomitant]
     Dosage: 10 MG CR
  7. POTASSIUM (UNSPECIFIED) [Concomitant]

REACTIONS (8)
  - Nervousness [Unknown]
  - Dysgeusia [Unknown]
  - Dysgeusia [Unknown]
  - Decreased appetite [Unknown]
  - Weight decreased [Unknown]
  - Diarrhoea [Unknown]
  - Nausea [Unknown]
  - Influenza like illness [Unknown]
